FAERS Safety Report 8351178-9 (Version None)
Quarter: 2012Q2

REPORT INFORMATION
  Report Type: 
  Country: None (occurrence: None)
  Receive Date: 20120510
  Receipt Date: 20120504
  Transmission Date: 20120825
  Serious: No
  Sender: FDA-Public Use
  Company Number: US-PFIZER INC-2012110360

PATIENT
  Sex: Male

DRUGS (3)
  1. VITAMIN D [Concomitant]
     Dosage: UNK
  2. XALATAN [Suspect]
     Indication: INTRAOCULAR PRESSURE INCREASED
     Dosage: UNK, 1X/DAY
     Route: 047
     Dates: start: 19900101
  3. VITAMIN B COMPLEX CAP [Concomitant]
     Dosage: UNK

REACTIONS (7)
  - RHINORRHOEA [None]
  - COUGH [None]
  - BLOOD URIC ACID INCREASED [None]
  - NASOPHARYNGITIS [None]
  - LACRIMATION INCREASED [None]
  - HYPERSENSITIVITY [None]
  - BLOOD CHOLESTEROL INCREASED [None]
